FAERS Safety Report 5006530-6 (Version None)
Quarter: 2006Q2

REPORT INFORMATION
  Report Type: 
  Country: None (occurrence: None)
  Receive Date: 20060516
  Receipt Date: 20060504
  Transmission Date: 20061013
  Serious: Yes (Hospitalization, Disabling)
  Sender: FDA-Public Use
  Company Number: DE200605001132

PATIENT
  Age: 84 Year
  Sex: Male
  Weight: 65 kg

DRUGS (6)
  1. CYMBALTA [Suspect]
     Indication: DEPRESSION
     Dosage: 30 MG, DAILY (1/D), ORAL; 60 MG, DAILY (1/D), ORAL
     Route: 048
     Dates: start: 20060206, end: 20060330
  2. CYMBALTA [Suspect]
     Indication: DEPRESSION
     Dosage: 30 MG, DAILY (1/D), ORAL; 60 MG, DAILY (1/D), ORAL
     Route: 048
     Dates: start: 20060330
  3. CITALOPRAM HYDROBROMIDE [Concomitant]
  4. PANTOZOL/GFR (PANTOPRAZOLE SODIUM) [Concomitant]
  5. GLIMEPIRIDE [Concomitant]
  6. SOMNOSAN (ZOPICLONE) [Concomitant]

REACTIONS (2)
  - CARDIAC FAILURE [None]
  - DEMENTIA [None]
